FAERS Safety Report 14458474 (Version 1)
Quarter: 2018Q1

REPORT INFORMATION
  Report Type: Spontaneous
  Country: US (occurrence: US)
  Receive Date: 20180130
  Receipt Date: 20180130
  Transmission Date: 20180509
  Serious: No
  Sender: FDA-Public Use
  Company Number: US-PFIZER INC-2018037150

PATIENT
  Age: 67 Year
  Sex: Female

DRUGS (1)
  1. ZALEPLON. [Suspect]
     Active Substance: ZALEPLON
     Dosage: UNK

REACTIONS (2)
  - Drug hypersensitivity [Unknown]
  - Lip swelling [Unknown]
